FAERS Safety Report 5272738-8 (Version None)
Quarter: 2007Q1

REPORT INFORMATION
  Report Type: 
  Country: None (occurrence: None)
  Receive Date: 20070322
  Receipt Date: 20070319
  Transmission Date: 20070707
  Serious: Yes (Other)
  Sender: FDA-Public Use
  Company Number: US-GLAXOSMITHKLINE-A0638186A

PATIENT
  Age: 91 Year
  Sex: Female

DRUGS (4)
  1. ADVAIR DISKUS 100/50 [Suspect]
     Indication: CHRONIC OBSTRUCTIVE PULMONARY DISEASE
     Dosage: 100MCG TWICE PER DAY
     Route: 055
  2. SPIRIVA [Concomitant]
  3. TOPRAL [Concomitant]
  4. UNSPECIFIED MEDICATION [Concomitant]

REACTIONS (3)
  - EYE DISORDER [None]
  - GLAUCOMA [None]
  - MACULAR DEGENERATION [None]
